FAERS Safety Report 16957455 (Version 1)
Quarter: 2019Q4

REPORT INFORMATION
  Report Type: Spontaneous
  Country: PE (occurrence: PE)
  Receive Date: 20191024
  Receipt Date: 20191024
  Transmission Date: 20200122
  Serious: Yes (Death)
  Sender: FDA-Public Use
  Company Number: PE-PFIZER INC-2019456502

PATIENT
  Age: 79 Year
  Sex: Male

DRUGS (4)
  1. ECALTA [Suspect]
     Active Substance: ANIDULAFUNGIN
     Dosage: 200 MG, DAILY (LOADING DOSE)
  2. IMIPENEM [Concomitant]
     Active Substance: IMIPENEM
     Dosage: 1 G, 3X/DAY
     Route: 042
  3. VANCOMYCIN [Concomitant]
     Active Substance: VANCOMYCIN
     Dosage: 1 G, 2X/DAY
  4. ECALTA [Suspect]
     Active Substance: ANIDULAFUNGIN
     Dosage: 100 MG, DAILY

REACTIONS (1)
  - Cardio-respiratory arrest [Fatal]
